FAERS Safety Report 7730331-9 (Version None)
Quarter: 2011Q3

REPORT INFORMATION
  Report Type: 
  Country: None (occurrence: None)
  Receive Date: 20110906
  Receipt Date: 20110823
  Transmission Date: 20111222
  Serious: Yes (Death, Hospitalization, Other)
  Sender: FDA-Public Use
  Company Number: US-ELI_LILLY_AND_COMPANY-US201106005656

PATIENT
  Sex: Female

DRUGS (14)
  1. TENORMIN [Concomitant]
  2. ZOCOR [Concomitant]
  3. FORTEO [Suspect]
     Indication: OSTEOPOROSIS
     Dosage: UNK
     Route: 058
     Dates: start: 20100701, end: 20101231
  4. CYMBALTA [Concomitant]
  5. POTASSIUM CHLORIDE [Concomitant]
  6. LYRICA [Concomitant]
  7. SOMA [Concomitant]
  8. LORA TAB [Concomitant]
  9. MICARDIS [Concomitant]
  10. PRILOSEC [Concomitant]
  11. XANAX [Concomitant]
  12. AMBIEN [Concomitant]
  13. LASIX [Concomitant]
  14. AMARYL [Concomitant]

REACTIONS (15)
  - ABDOMINAL INJURY [None]
  - DEFORMITY [None]
  - NEURALGIA [None]
  - SOFT TISSUE DISORDER [None]
  - INTERVERTEBRAL DISC DEGENERATION [None]
  - CELLULITIS [None]
  - ANXIETY [None]
  - DEATH [None]
  - FAT NECROSIS [None]
  - FEAR [None]
  - PAIN [None]
  - EMOTIONAL DISTRESS [None]
  - SKIN NECROSIS [None]
  - TRANSMISSION OF AN INFECTIOUS AGENT VIA A MEDICINAL PRODUCT [None]
  - GENERAL PHYSICAL CONDITION ABNORMAL [None]
